FAERS Safety Report 4816294-4 (Version None)
Quarter: 2005Q4

REPORT INFORMATION
  Report Type: 
  Country: None (occurrence: None)
  Receive Date: 20051028
  Receipt Date: 20051026
  Transmission Date: 20060501
  Serious: Yes (Life-Threatening, Hospitalization)
  Sender: FDA-Public Use
  Company Number: ES-2005-019101

PATIENT
  Age: 26 Year
  Sex: Female

DRUGS (6)
  1. YASMIN [Suspect]
     Indication: CONTRACEPTION
     Dosage: 1 TAB (S), CYCLES, ORAL
     Route: 048
     Dates: end: 20050731
  2. NEOBRUFEN [Concomitant]
  3. MYOLASTIN (TETRAZEPAM) [Concomitant]
  4. OMEPRAZOLE [Concomitant]
  5. EFFERGALAN [Concomitant]
  6. PULMICORT [Concomitant]

REACTIONS (3)
  - PULMONARY EMBOLISM [None]
  - PULMONARY INFARCTION [None]
  - THROMBOPHLEBITIS [None]
